FAERS Safety Report 6889571-3 (Version None)
Quarter: 2010Q3

REPORT INFORMATION
  Report Type: 
  Country: None (occurrence: None)
  Receive Date: 20100730
  Receipt Date: 20080320
  Transmission Date: 20110219
  Serious: No
  Sender: FDA-Public Use
  Company Number: US-PFIZER INC-2008026554

PATIENT
  Sex: Male
  Weight: 90.909 kg

DRUGS (4)
  1. LIPITOR [Suspect]
     Indication: BLOOD CHOLESTEROL ABNORMAL
  2. INSULIN DETEMIR [Concomitant]
  3. NOVOLOG [Concomitant]
  4. ZOCOR [Concomitant]

REACTIONS (2)
  - CHROMATURIA [None]
  - LIVER FUNCTION TEST ABNORMAL [None]
